FAERS Safety Report 7400819-9 (Version None)
Quarter: 2011Q2

REPORT INFORMATION
  Report Type: 
  Country: None (occurrence: None)
  Receive Date: 20110407
  Receipt Date: 20110210
  Transmission Date: 20111010
  Serious: Yes (Hospitalization)
  Sender: FDA-Public Use
  Company Number: US-BAYER-201030041NA

PATIENT
  Sex: Female

DRUGS (9)
  1. YAZ [Suspect]
     Indication: PRODUCT USED FOR UNKNOWN INDICATION
     Route: 048
     Dates: start: 20070301, end: 20070615
  2. DECADRON [Concomitant]
     Dosage: 8 MG, UNK
  3. YASMIN [Suspect]
     Indication: PRODUCT USED FOR UNKNOWN INDICATION
     Route: 048
     Dates: start: 20070607, end: 20070715
  4. OCELLA [Suspect]
  5. FIORICET [Concomitant]
  6. CELESTONE [Concomitant]
     Dosage: 6 MG, UNK
  7. DECADRON [Concomitant]
     Dosage: 4 MG/ML, UNK
  8. UNCODEABLE ^UNCLASSIFIABLE^ [Concomitant]
  9. SYNTHROID [Concomitant]

REACTIONS (6)
  - DYSPNOEA [None]
  - BACK PAIN [None]
  - HEADACHE [None]
  - CHEST PAIN [None]
  - PULMONARY EMBOLISM [None]
  - PAIN [None]
